FAERS Safety Report 20726611 (Version 1)
Quarter: 2022Q2

REPORT INFORMATION
  Report Type: Report from Study
  Country: US (occurrence: US)
  Receive Date: 20220419
  Receipt Date: 20220419
  Transmission Date: 20220721
  Serious: Yes (Hospitalization, Other)
  Sender: FDA-Public Use
  Company Number: US-JAZZ-2021-US-022661

PATIENT
  Sex: Male

DRUGS (18)
  1. XYREM [Suspect]
     Active Substance: SODIUM OXYBATE
     Indication: Narcolepsy
     Dosage: 2.25 GRAM, BID
     Route: 048
     Dates: start: 200312, end: 200401
  2. XYREM [Suspect]
     Active Substance: SODIUM OXYBATE
     Indication: Cataplexy
     Dosage: 4.5 GRAM, BID
     Route: 048
     Dates: start: 200401, end: 202111
  3. DECADRON [Suspect]
     Active Substance: DEXAMETHASONE
     Indication: Cluster headache
  4. DILTIAZEM [Concomitant]
     Active Substance: DILTIAZEM
     Dosage: 0000
     Dates: start: 20151229
  5. BYSTOLIC [Concomitant]
     Active Substance: NEBIVOLOL HYDROCHLORIDE
     Dosage: 0000
     Dates: start: 20151229
  6. INDAPAMIDE [Concomitant]
     Active Substance: INDAPAMIDE
     Dosage: 0000
     Dates: start: 20151229
  7. ATACAND [Concomitant]
     Active Substance: CANDESARTAN CILEXETIL
     Dosage: 0000
     Dates: start: 20151229
  8. NEVANAC [Concomitant]
     Active Substance: NEPAFENAC
     Dosage: 0000
     Dates: start: 20151229
  9. APIDRA [Concomitant]
     Active Substance: INSULIN GLULISINE
     Dosage: 0000
     Dates: start: 20151229
  10. LEVOTHYROXINE [Concomitant]
     Active Substance: LEVOTHYROXINE
     Dosage: 0000
     Dates: start: 20151229
  11. EDARBI [Concomitant]
     Active Substance: AZILSARTAN KAMEDOXOMIL
     Dosage: 0000
     Dates: start: 20151229
  12. ULORIC [Concomitant]
     Active Substance: FEBUXOSTAT
     Dosage: 0000
     Dates: start: 20151229
  13. ASTEPRO [Concomitant]
     Active Substance: AZELASTINE HYDROCHLORIDE
     Dosage: 0000
     Dates: start: 20151229
  14. DESOXYN [Concomitant]
     Active Substance: METHAMPHETAMINE HYDROCHLORIDE
     Dosage: 0000
     Dates: start: 20151229
  15. RHINOCORT AQUA [Concomitant]
     Active Substance: BUDESONIDE
     Dosage: 0000
     Dates: start: 20151229
  16. ZOLPIDEM TARTRATE [Concomitant]
     Active Substance: ZOLPIDEM TARTRATE
     Dosage: 0000
     Dates: start: 20151229
  17. CRESTOR [Concomitant]
     Active Substance: ROSUVASTATIN CALCIUM
     Dosage: 0000
     Dates: start: 20191028
  18. XOPENEX HFA [Concomitant]
     Active Substance: LEVALBUTEROL TARTRATE
     Dosage: 0000
     Dates: start: 20011028

REACTIONS (10)
  - Pneumonia [Unknown]
  - Bacterial infection [Unknown]
  - Streptobacillus infection [Unknown]
  - Arthropathy [Unknown]
  - Migraine [Unknown]
  - Cluster headache [Recovering/Resolving]
  - Osteopenia [Not Recovered/Not Resolved]
  - Osteoporosis [Not Recovered/Not Resolved]
  - Acne [Unknown]
  - Blood glucose increased [Unknown]

NARRATIVE: CASE EVENT DATE: 20190101
